FAERS Safety Report 7315830-6 (Version None)
Quarter: 2011Q1

REPORT INFORMATION
  Report Type: 
  Country: None (occurrence: None)
  Receive Date: 20110225
  Receipt Date: 20110217
  Transmission Date: 20110831
  Serious: Yes (Other)
  Sender: FDA-Public Use
  Company Number: US-CEPHALON-2011000546

PATIENT
  Sex: Female
  Weight: 72 kg

DRUGS (5)
  1. CAFFEINE PILL (OTC) [Concomitant]
  2. KLOR-CON [Concomitant]
     Dates: start: 20090101
  3. HYDROCHLOROTHIAZIDE [Concomitant]
     Dates: start: 20090101
  4. NUVIGIL [Suspect]
     Indication: NARCOLEPSY
     Route: 048
     Dates: start: 20100923, end: 20100901
  5. METOPROLOL SUCCINATE [Concomitant]

REACTIONS (3)
  - DRUG INEFFECTIVE [None]
  - VISION BLURRED [None]
  - EYE IRRITATION [None]
